FAERS Safety Report 10384321 (Version 3)
Quarter: 2014Q4

REPORT INFORMATION
  Report Type: Spontaneous
  Country: US (occurrence: US)
  Receive Date: 20140814
  Receipt Date: 20141015
  Transmission Date: 20150528
  Serious: Yes (Death)
  Sender: FDA-Public Use
  Company Number: US-PFIZER INC-2014223283

PATIENT
  Age: 72 Year
  Sex: Male

DRUGS (1)
  1. SUTENT [Suspect]
     Active Substance: SUNITINIB MALATE
     Indication: RENAL CANCER METASTATIC
     Dosage: 50 MG, DAILY
     Dates: start: 20140831

REACTIONS (7)
  - Taciturnity [Unknown]
  - Death [Fatal]
  - Nausea [Unknown]
  - Dysgeusia [Unknown]
  - Disease progression [Unknown]
  - Dehydration [Unknown]
  - Renal cancer metastatic [Unknown]
